FAERS Safety Report 4500859-3 (Version None)
Quarter: 2004Q4

REPORT INFORMATION
  Report Type: 
  Country: None (occurrence: None)
  Receive Date: 20041109
  Receipt Date: 20041020
  Transmission Date: 20050328
  Serious: Yes (Hospitalization, Other)
  Sender: FDA-Public Use
  Company Number: US_0410107499

PATIENT
  Age: 33 Year
  Sex: Female

DRUGS (1)
  1. BREVITAL SODIUM INJ [Suspect]
     Indication: ELECTROCONVULSIVE THERAPY
     Dosage: 100 MG DAY
     Dates: start: 20041020, end: 20041020

REACTIONS (2)
  - GRAND MAL CONVULSION [None]
  - PHARMACEUTICAL PRODUCT COMPLAINT [None]
